FAERS Safety Report 15717355 (Version 1)
Quarter: 2018Q4

REPORT INFORMATION
  Report Type: Spontaneous
  Country: DE (occurrence: DE)
  Receive Date: 20181213
  Receipt Date: 20181213
  Transmission Date: 20190205
  Serious: Yes (Other)
  Sender: FDA-Public Use
  Company Number: DE-BAYER-2018-025246

PATIENT
  Age: 42 Year
  Sex: Female
  Weight: 93.3 kg

DRUGS (2)
  1. MIRENA [Suspect]
     Active Substance: LEVONORGESTREL
  2. MIRENA [Suspect]
     Active Substance: LEVONORGESTREL
     Indication: MENORRHAGIA
     Dosage: UNK
     Dates: start: 201611

REACTIONS (6)
  - Pregnancy with contraceptive device [None]
  - Pre-eclampsia [None]
  - Premature delivery [None]
  - Device dislocation [None]
  - Drug ineffective [None]
  - Genital haemorrhage [None]

NARRATIVE: CASE EVENT DATE: 201703
